FAERS Safety Report 10182662 (Version 1)
Quarter: 2014Q2

REPORT INFORMATION
  Report Type: Spontaneous
  Country: US (occurrence: None)
  Receive Date: 20140519
  Receipt Date: 20140519
  Transmission Date: 20141212
  Serious: Yes (Disabling)
  Sender: FDA-Public Use
  Company Number: None

PATIENT
  Age: 49 Year
  Sex: Male
  Weight: 90.72 kg

DRUGS (1)
  1. DEPOMEDROL [Suspect]
     Indication: PAIN IN EXTREMITY
     Dosage: 80CC PLUS 2 ESI, S, INJECTED INTO SPINAL AREA

REACTIONS (3)
  - Arachnoiditis [None]
  - Pain in extremity [None]
  - Condition aggravated [None]
